FAERS Safety Report 6458666-0 (Version None)
Quarter: 2009Q4

REPORT INFORMATION
  Report Type: 
  Country: None (occurrence: None)
  Receive Date: 20091127
  Receipt Date: 20091116
  Transmission Date: 20100525
  Serious: No
  Sender: FDA-Public Use
  Company Number: US-JNJFOC-20091105312

PATIENT
  Sex: Female
  Weight: 86.18 kg

DRUGS (10)
  1. DURAGESIC-100 [Suspect]
     Indication: BACK PAIN
     Route: 062
     Dates: start: 20030101
  2. FENTANYL-100 [Suspect]
     Indication: BACK PAIN
     Route: 062
  3. FENTANYL CITRATE [Suspect]
     Indication: BACK PAIN
  4. DURAGESIC-100 [Suspect]
     Route: 062
     Dates: start: 20091114
  5. WELLBUTRIN [Concomitant]
     Indication: DEPRESSION
     Route: 048
  6. ATARAX [Concomitant]
     Indication: PRURITUS
     Route: 048
     Dates: start: 19720101
  7. LISINOPRIL [Concomitant]
     Indication: HYPERTENSION
     Route: 048
  8. FLEXERIL [Concomitant]
     Indication: MUSCLE DISORDER
     Route: 048
  9. XANAX [Concomitant]
     Indication: ANXIETY
     Route: 048
  10. LORTAB [Concomitant]
     Indication: PAIN
     Route: 048

REACTIONS (9)
  - APPLICATION SITE EROSION [None]
  - APPLICATION SITE PAIN [None]
  - APPLICATION SITE RASH [None]
  - BLOOD CHOLESTEROL INCREASED [None]
  - HEART RATE INCREASED [None]
  - HYPERTENSION [None]
  - INAPPROPRIATE SCHEDULE OF DRUG ADMINISTRATION [None]
  - WEIGHT INCREASED [None]
  - WRONG TECHNIQUE IN DRUG USAGE PROCESS [None]
